FAERS Safety Report 8912565 (Version 1)
Quarter: 2012Q4

REPORT INFORMATION
  Report Type: Report from Study
  Country: JP (occurrence: JP)
  Receive Date: 20121116
  Receipt Date: 20121116
  Transmission Date: 20130627
  Serious: Yes (Other)
  Sender: FDA-Public Use
  Company Number: JP-VERTEX PHARMACEUTICAL INC.-AE-2012-010028

PATIENT
  Age: 71 Year
  Sex: Female

DRUGS (10)
  1. VX-950 (TELAPREVIR) [Suspect]
     Indication: CHRONIC HEPATITIS C
     Dosage: 1500 mg, qd
     Route: 048
     Dates: start: 20120221, end: 20120328
  2. VX-950 (TELAPREVIR) [Suspect]
     Dosage: 1500 mg, qd
     Route: 048
     Dates: start: 20120426, end: 20120516
  3. PEGINTRON                          /01543001/ [Suspect]
     Indication: CHRONIC HEPATITIS C
     Dosage: 1.25 ?g/kg, qw
     Route: 058
     Dates: start: 20120221, end: 20120329
  4. PEGINTRON                          /01543001/ [Suspect]
     Dosage: 1.25 ?g/kg, qw
     Route: 058
     Dates: start: 20120426
  5. REBETOL [Suspect]
     Indication: CHRONIC HEPATITIS C
     Dosage: 400 mg, qd
     Route: 048
     Dates: start: 20120221, end: 20120329
  6. REBETOL [Suspect]
     Dosage: 400 mg, qd
     Route: 048
     Dates: start: 20120426
  7. LASIX                              /00032601/ [Suspect]
     Indication: ADVERSE EVENT
     Dosage: 40 mg, qd
     Route: 048
     Dates: start: 20120502, end: 20120621
  8. CONIEL [Concomitant]
     Dosage: 2 mg, qd
     Route: 048
     Dates: end: 20120329
  9. ADALAT [Concomitant]
     Dosage: 40 mg, qd
     Route: 048
     Dates: start: 20120419, end: 20120507
  10. BLOPRESS [Concomitant]
     Dosage: 12 mg, qd
     Route: 048
     Dates: start: 20120510

REACTIONS (3)
  - Cardiac failure [Recovered/Resolved]
  - Renal disorder [Unknown]
  - Oedema peripheral [Recovered/Resolved]
